FAERS Safety Report 11565881 (Version 1)
Quarter: 2015Q3

REPORT INFORMATION
  Report Type: Report from Study
  Country: US (occurrence: US)
  Receive Date: 20150928
  Receipt Date: 20150928
  Transmission Date: 20151125
  Serious: No
  Sender: FDA-Public Use
  Company Number: US-AMGEN-USASL2015099443

PATIENT
  Sex: Male

DRUGS (1)
  1. ENBREL [Suspect]
     Active Substance: ETANERCEPT
     Indication: PSORIATIC ARTHROPATHY
     Dosage: 50 MG, QWK, EVERY MONDAY MORNING
     Route: 065

REACTIONS (3)
  - Finger deformity [Recovering/Resolving]
  - Tooth extraction [Unknown]
  - Pain in extremity [Recovering/Resolving]
